FAERS Safety Report 4283937-6 (Version None)
Quarter: 2004Q1

REPORT INFORMATION
  Report Type: 
  Country: None (occurrence: None)
  Receive Date: 20040115
  Receipt Date: 20030509
  Transmission Date: 20041129
  Serious: Yes (Other)
  Sender: FDA-Public Use
  Company Number: NSADSS2002046770

PATIENT
  Age: 65 Year
  Sex: Male

DRUGS (2)
  1. DOXIL [Suspect]
     Indication: MALIGNANT SPLENIC NEOPLASM
     Dosage: INTRAVENOUS DRIP
     Route: 041
     Dates: start: 20020801, end: 20020801
  2. MULTIVITAMIN [Concomitant]

REACTIONS (4)
  - HYPERSENSITIVITY [None]
  - LOSS OF CONSCIOUSNESS [None]
  - RESPIRATORY DISTRESS [None]
  - WHEEZING [None]
